FAERS Safety Report 6759774-7 (Version None)
Quarter: 2010Q2

REPORT INFORMATION
  Report Type: 
  Country: None (occurrence: None)
  Receive Date: 20100604
  Receipt Date: 20100512
  Transmission Date: 20101027
  Serious: Yes (Hospitalization)
  Sender: FDA-Public Use
  Company Number: 2009003957

PATIENT
  Age: 54 Year
  Sex: Female

DRUGS (3)
  1. ERLOTINIB/PLACEBO (ERLOTINIB) (TABLET) (ERLOTINIB) [Suspect]
     Indication: HEPATIC NEOPLASM MALIGNANT
     Dosage: ORAL
     Route: 048
  2. SORAFENIB [Suspect]
     Indication: HEPATIC NEOPLASM MALIGNANT
     Dosage: ORAL
     Route: 048
     Dates: end: 20091222
  3. SPIRONOLACTONE [Concomitant]

REACTIONS (2)
  - HYPERTENSION [None]
  - VOMITING [None]
